FAERS Safety Report 18500523 (Version 1)
Quarter: 2020Q4

REPORT INFORMATION
  Report Type: Spontaneous
  Country: IN (occurrence: IN)
  Receive Date: 20201113
  Receipt Date: 20201113
  Transmission Date: 20210114
  Serious: Yes (Other)
  Sender: FDA-Public Use
  Company Number: IN-ACCORD-207961

PATIENT
  Age: 43 Year
  Sex: Male

DRUGS (10)
  1. VINBLASTINE [Concomitant]
     Active Substance: VINBLASTINE
     Indication: GERM CELL CANCER
  2. CISPLATIN. [Suspect]
     Active Substance: CISPLATIN
     Indication: GERM CELL CANCER
     Dosage: CUMULATIVE CISPLATIN DOSE OF 500 MG/M^2
  3. CISPLATIN. [Suspect]
     Active Substance: CISPLATIN
     Indication: METASTASES TO LUNG
     Dosage: CUMULATIVE CISPLATIN DOSE OF 500 MG/M^2
  4. IFOSFAMIDE. [Concomitant]
     Active Substance: IFOSFAMIDE
     Indication: GERM CELL CANCER
     Dosage: 6GM/SQ. MT
  5. BLEOMYCIN [Concomitant]
     Active Substance: BLEOMYCIN SULFATE
     Indication: METASTASES TO LUNG
  6. ETOPOSIDE. [Concomitant]
     Active Substance: ETOPOSIDE
     Indication: GERM CELL CANCER
     Dosage: 2GM/SQ. MT.
  7. VINBLASTINE [Concomitant]
     Active Substance: VINBLASTINE
     Indication: METASTASES TO LUNG
  8. IFOSFAMIDE. [Concomitant]
     Active Substance: IFOSFAMIDE
     Indication: METASTASES TO LUNG
     Dosage: 6 GM/SQ. MT.
  9. BLEOMYCIN [Concomitant]
     Active Substance: BLEOMYCIN SULFATE
     Indication: GERM CELL CANCER
  10. ETOPOSIDE. [Concomitant]
     Active Substance: ETOPOSIDE
     Indication: METASTASES TO LUNG
     Dosage: 2GM/SQ. MT.

REACTIONS (2)
  - Intestinal pseudo-obstruction [Recovered/Resolved]
  - Cell-mediated cytotoxicity [Recovered/Resolved]
